FAERS Safety Report 7569240-7 (Version None)
Quarter: 2011Q2

REPORT INFORMATION
  Report Type: 
  Country: None (occurrence: None)
  Receive Date: 20110623
  Receipt Date: 20110615
  Transmission Date: 20111010
  Serious: Yes (Hospitalization)
  Sender: FDA-Public Use
  Company Number: PHHY2011US52925

PATIENT
  Age: 49 Year
  Sex: Male
  Weight: 94 kg

DRUGS (6)
  1. MITOXANTRONE [Concomitant]
  2. FAMPRIDINE [Concomitant]
     Dosage: UNK UKN, UNK
  3. GILENYA [Suspect]
     Dosage: UNK UKN, UNK
  4. NATALIZUMAB [Concomitant]
  5. GLATIRAMER ACETATE [Concomitant]
  6. INTERFERON BETA-1B [Suspect]
     Dosage: UNK UKN, UNK
     Route: 058

REACTIONS (2)
  - MUSCLE SPASTICITY [None]
  - MUSCULOSKELETAL STIFFNESS [None]
